FAERS Safety Report 6398756-4 (Version None)
Quarter: 2009Q4

REPORT INFORMATION
  Report Type: 
  Country: None (occurrence: None)
  Receive Date: 20091007
  Receipt Date: 20090923
  Transmission Date: 20100525
  Serious: Yes (Hospitalization)
  Sender: FDA-Public Use
  Company Number: ENT-2009-0168

PATIENT
  Age: 69 Year
  Sex: Male

DRUGS (4)
  1. COMTAN [Suspect]
     Indication: DRUG EFFECT DECREASED
     Dosage: 300 MG ORAL
     Route: 048
     Dates: start: 20081218, end: 20090109
  2. LEVODOPA BENSERAZIDE HYDROCHLORIDE [Concomitant]
  3. AMANTADINE HYDROCHLORIDE [Concomitant]
  4. SELEGILINE HYDROCHLORIDE [Concomitant]

REACTIONS (10)
  - ALANINE AMINOTRANSFERASE INCREASED [None]
  - ASPARTATE AMINOTRANSFERASE INCREASED [None]
  - BLOOD ALKALINE PHOSPHATASE INCREASED [None]
  - BLOOD LACTATE DEHYDROGENASE INCREASED [None]
  - BLOOD UREA INCREASED [None]
  - CONDITION AGGRAVATED [None]
  - DEHYDRATION [None]
  - EATING DISORDER [None]
  - HEPATIC FUNCTION ABNORMAL [None]
  - PARKINSON'S DISEASE [None]
